FAERS Safety Report 7709163-3 (Version None)
Quarter: 2011Q3

REPORT INFORMATION
  Report Type: 
  Country: None (occurrence: None)
  Receive Date: 20110825
  Receipt Date: 20110816
  Transmission Date: 20111222
  Serious: Yes (Other)
  Sender: FDA-Public Use
  Company Number: PHHY2011US63047

PATIENT
  Sex: Male

DRUGS (5)
  1. VALIUM [Concomitant]
     Dosage: UNK UKN, UNK
  2. STALEVO 100 [Concomitant]
     Dosage: 3 DF, UNK
  3. OXYCONTIN [Concomitant]
     Dosage: 4 DF, UNK
  4. EXELON [Suspect]
     Indication: PARKINSON'S DISEASE
     Dosage: 4.6 MG, PER DAY
     Route: 062
     Dates: end: 20110603
  5. LOPID [Concomitant]
     Dosage: UNK UKN, UNK

REACTIONS (6)
  - DIZZINESS [None]
  - IMPAIRED GASTRIC EMPTYING [None]
  - GASTROINTESTINAL HAEMORRHAGE [None]
  - DRUG INEFFECTIVE [None]
  - LOSS OF CONSCIOUSNESS [None]
  - BLOOD PRESSURE DECREASED [None]
